FAERS Safety Report 7909955-1 (Version None)
Quarter: 2011Q4

REPORT INFORMATION
  Report Type: 
  Country: None (occurrence: None)
  Receive Date: 20111111
  Receipt Date: 20111107
  Transmission Date: 20120403
  Serious: Yes (Hospitalization, Other)
  Sender: FDA-Public Use
  Company Number: US-ABBOTT-11P-163-0872732-00

PATIENT
  Age: 56 Year
  Sex: Female

DRUGS (4)
  1. MULTI-VITAMINS [Concomitant]
     Indication: PRODUCT USED FOR UNKNOWN INDICATION
  2. HUMIRA [Suspect]
     Indication: PSORIATIC ARTHROPATHY
     Route: 058
     Dates: end: 20111001
  3. AMBIEN [Concomitant]
     Indication: SLEEP DISORDER
     Dosage: EVERY NIGHT
  4. PROBIOTICS [Concomitant]
     Indication: PRODUCT USED FOR UNKNOWN INDICATION

REACTIONS (10)
  - PAIN [None]
  - FALL [None]
  - PYREXIA [None]
  - APPENDICITIS PERFORATED [None]
  - HAND FRACTURE [None]
  - SWELLING [None]
  - JOINT WARMTH [None]
  - HYPERTENSION [None]
  - ARTHRALGIA [None]
  - JOINT SWELLING [None]
